FAERS Safety Report 5322162-4 (Version None)
Quarter: 2007Q2

REPORT INFORMATION
  Report Type: 
  Country: None (occurrence: None)
  Receive Date: 20070511
  Receipt Date: 20070501
  Transmission Date: 20071010
  Serious: Yes (Death)
  Sender: FDA-Public Use
  Company Number: HQWYE946402MAY07

PATIENT
  Sex: Male

DRUGS (3)
  1. EFFEXOR [Suspect]
     Dosage: UNKNOWN
     Route: 048
  2. FENTANYL [Suspect]
     Dosage: UNKNOWN
  3. LYRICA [Concomitant]
     Dosage: UNKNOWN

REACTIONS (1)
  - CARDIAC ARREST [None]
